FAERS Safety Report 5510456-9 (Version None)
Quarter: 2007Q4

REPORT INFORMATION
  Report Type: 
  Country: None (occurrence: None)
  Receive Date: 20071108
  Receipt Date: 20071029
  Transmission Date: 20080405
  Serious: Yes (Hospitalization)
  Sender: FDA-Public Use
  Company Number: GB-PFIZER INC-2007091688

PATIENT
  Sex: Male

DRUGS (1)
  1. ACCUPRO [Suspect]
     Route: 048

REACTIONS (4)
  - DYSPNOEA [None]
  - HYPERHIDROSIS [None]
  - MEDICATION ERROR [None]
  - SKIN DISCOLOURATION [None]
